FAERS Safety Report 9708663 (Version 1)
Quarter: 2013Q4

REPORT INFORMATION
  Report Type: Spontaneous
  Country: TW (occurrence: None)
  Receive Date: 20131121
  Receipt Date: 20131121
  Transmission Date: 20140711
  Serious: Yes (Other)
  Sender: FDA-Public Use
  Company Number: 2013P1021108

PATIENT
  Age: 42 Year
  Sex: Female

DRUGS (1)
  1. SULFAMETHOXAZOLE AND TRIMETHOPRIM [Suspect]
     Indication: PNEUMOCYSTIS JIROVECII PNEUMONIA
     Dosage: 320 MG; Q8H; IV
     Route: 042

REACTIONS (7)
  - Restlessness [None]
  - Tremor [None]
  - Sleep disorder [None]
  - Hallucination, visual [None]
  - Confusional state [None]
  - Infection [None]
  - Psychotic behaviour [None]
